FAERS Safety Report 13831061 (Version 6)
Quarter: 2018Q3

REPORT INFORMATION
  Report Type: Spontaneous
  Country: FR (occurrence: FR)
  Receive Date: 20170803
  Receipt Date: 20180910
  Transmission Date: 20181010
  Serious: Yes (Hospitalization, Other)
  Sender: FDA-Public Use
  Company Number: FR-009507513-1708FRA000168

PATIENT
  Age: 33 Year
  Sex: Male
  Weight: 59.3 kg

DRUGS (26)
  1. NEBCINE [Suspect]
     Active Substance: TOBRAMYCIN
     Indication: PNEUMONIA STREPTOCOCCAL
     Dosage: 400 MG,QD
     Route: 042
     Dates: start: 20170629, end: 20170701
  2. COLIMYCINE (COLISTIN SULFATE) [Suspect]
     Active Substance: COLISTIN SULFATE
     Indication: PNEUMONIA
     Dosage: 8 DF, UNK
     Route: 055
     Dates: start: 20170602
  3. ZERBAXA [Suspect]
     Active Substance: CEFTOLOZANE SULFATE\TAZOBACTAM SODIUM
     Dosage: 2 G,Q8H
     Route: 042
     Dates: start: 20170709, end: 20170711
  4. NEBCINE [Suspect]
     Active Substance: TOBRAMYCIN
     Indication: PNEUMONIA STAPHYLOCOCCAL
     Dosage: 400 MG,QD
     Route: 042
     Dates: start: 20170622, end: 20170624
  5. ZERBAXA [Suspect]
     Active Substance: CEFTOLOZANE SULFATE\TAZOBACTAM SODIUM
     Indication: SEPTIC SHOCK
     Dosage: 2 G,Q8H
     Route: 042
     Dates: start: 20170624, end: 20170629
  6. MYCAMINE [Concomitant]
     Active Substance: MICAFUNGIN SODIUM
     Indication: CANDIDA INFECTION
     Dosage: 100 MG,QD
     Route: 042
     Dates: start: 20170605, end: 20170612
  7. COLIMYCINE (COLISTIN SULFATE) [Suspect]
     Active Substance: COLISTIN SULFATE
     Dosage: 2 DF, Q6H
     Route: 055
     Dates: start: 20170626, end: 20170703
  8. CIFLOX (CIPROFLOXACIN) [Concomitant]
     Active Substance: CIPROFLOXACIN
     Indication: PNEUMONIA STAPHYLOCOCCAL
     Dosage: UNK
     Dates: end: 20170602
  9. FOSFOCINE [Concomitant]
     Active Substance: FOSFOMYCIN
     Indication: PNEUMONIA STAPHYLOCOCCAL
     Dosage: UNK UNK,UNK
     Route: 042
     Dates: start: 20170602, end: 20170617
  10. ZERBAXA [Suspect]
     Active Substance: CEFTOLOZANE SULFATE\TAZOBACTAM SODIUM
     Indication: SEPSIS
     Dosage: 6 G, UNK
     Route: 041
     Dates: start: 20170624
  11. MYCAMINE [Concomitant]
     Active Substance: MICAFUNGIN SODIUM
     Indication: SYSTEMIC CANDIDA
     Dosage: 800 MG, UNK
     Route: 042
     Dates: start: 20170601
  12. NEBCINE [Suspect]
     Active Substance: TOBRAMYCIN
     Indication: PNEUMONIA
     Dosage: 400 MG,QD
     Route: 042
     Dates: start: 20170612, end: 20170612
  13. ARGANOVA [Suspect]
     Active Substance: ARGATROBAN
     Indication: EMBOLISM
     Dosage: UNK UNK,UNK
     Route: 042
     Dates: start: 20170511, end: 20170712
  14. TAZOCILLINE [Concomitant]
     Active Substance: PIPERACILLIN SODIUM\TAZOBACTAM SODIUM
  15. COLIMYCINE (COLISTIN SULFATE) [Suspect]
     Active Substance: COLISTIN SULFATE
     Dosage: 2 DF, Q6H
     Route: 055
     Dates: start: 20170710, end: 20170711
  16. ZERBAXA [Suspect]
     Active Substance: CEFTOLOZANE SULFATE\TAZOBACTAM SODIUM
     Dosage: 6 G, UNK
     Route: 041
     Dates: start: 201707, end: 20170711
  17. METHADONE HYDROCHLORIDE. [Suspect]
     Active Substance: METHADONE HYDROCHLORIDE
     Indication: DRUG DEPENDENCE
     Dosage: 30 MG,QD
     Route: 042
     Dates: start: 20170602
  18. CLINDAMYCIN. [Concomitant]
     Active Substance: CLINDAMYCIN
     Dosage: UNK
  19. ARGANOVA [Suspect]
     Active Substance: ARGATROBAN
     Indication: THROMBOPHLEBITIS SEPTIC
  20. AMIKACIN. [Concomitant]
     Active Substance: AMIKACIN
     Dosage: UNK
  21. COLIMYCINE (COLISTIN SULFATE) [Suspect]
     Active Substance: COLISTIN SULFATE
     Indication: PNEUMONIA STREPTOCOCCAL
     Dosage: 2 DF,Q6H. FORMULATION: POWDER FOR NEBULISER SOLUTION
     Route: 055
     Dates: start: 20170602, end: 20170614
  22. COLIMYCINE (COLISTIN SULFATE) [Suspect]
     Active Substance: COLISTIN SULFATE
     Dosage: 2 DF,Q6H
     Route: 055
     Dates: start: 20170617, end: 20170623
  23. CLINDAMYCIN. [Concomitant]
     Active Substance: CLINDAMYCIN
     Dosage: UNK
  24. MYCAMINE [Concomitant]
     Active Substance: MICAFUNGIN SODIUM
     Dosage: UNK
     Dates: start: 20170617, end: 20170617
  25. NEBCINE [Suspect]
     Active Substance: TOBRAMYCIN
     Dosage: 400 MG,QD
     Route: 042
     Dates: start: 20170710, end: 20170711
  26. FOSFOCINE [Concomitant]
     Active Substance: FOSFOMYCIN
     Indication: PNEUMONIA
     Dosage: UNK UNK,UNK
     Route: 065
     Dates: start: 20170622, end: 20170623

REACTIONS (3)
  - Neutropenia [Recovered/Resolved]
  - Leukopenia [Recovered/Resolved]
  - Lymphopenia [Recovered/Resolved]

NARRATIVE: CASE EVENT DATE: 20170702
